FAERS Safety Report 14229957 (Version 1)
Quarter: 2017Q4

REPORT INFORMATION
  Report Type: Spontaneous
  Country: CN (occurrence: CN)
  Receive Date: 20171128
  Receipt Date: 20171128
  Transmission Date: 20180321
  Serious: Yes (Hospitalization, Other)
  Sender: FDA-Public Use
  Company Number: CN-BAYER-2017-221690

PATIENT
  Age: 61 Year
  Sex: Male

DRUGS (2)
  1. MOXIFLOXACIN IV [Suspect]
     Active Substance: MOXIFLOXACIN
     Indication: INFECTION
  2. ZADAXIN [Suspect]
     Active Substance: THYMALFASIN
     Dosage: 1.6 MG, QD

REACTIONS (7)
  - Anastomotic ulcer [Recovered/Resolved]
  - Gastrooesophageal reflux disease [Recovered/Resolved]
  - Faeces discoloured [Recovered/Resolved]
  - Haematemesis [Recovered/Resolved]
  - Nausea [Recovered/Resolved]
  - Gastric haemorrhage [Recovered/Resolved]
  - Abdominal distension [Recovered/Resolved]

NARRATIVE: CASE EVENT DATE: 2011
